FAERS Safety Report 9166970 (Version 2)
Quarter: 2013Q2

REPORT INFORMATION
  Report Type: Report from Study
  Country: DE (occurrence: DE)
  Receive Date: 20130317
  Receipt Date: 20130506
  Transmission Date: 20140414
  Serious: Yes (Hospitalization, Other)
  Sender: FDA-Public Use
  Company Number: DE-UCBSA-080230

PATIENT
  Sex: Female

DRUGS (5)
  1. VIMPAT [Suspect]
     Indication: EPILEPSY
     Dosage: DAILY DOSE: 50 MG
     Dates: start: 20081119
  2. VIMPAT [Suspect]
     Indication: EPILEPSY
     Dosage: DAILY DOSE 400 MG
  3. LEVETIRACETAM [Concomitant]
     Indication: EPILEPSY
     Dosage: DAILY DOSE: 2000 MG
  4. LEVETIRACETAM [Concomitant]
     Indication: EPILEPSY
     Dosage: 500 MG
  5. ZONISAMIDE [Concomitant]
     Indication: EPILEPSY
     Dosage: 300 MG/DAY
     Dates: end: 2009

REACTIONS (1)
  - Epilepsy [Unknown]
